FAERS Safety Report 6252113-X (Version None)
Quarter: 2009Q2

REPORT INFORMATION
  Report Type: 
  Country: None (occurrence: None)
  Receive Date: 20090630
  Receipt Date: 20080602
  Transmission Date: 20091009
  Serious: Yes (Hospitalization)
  Sender: FDA-Public Use
  Company Number: US-ROCHE-639004

PATIENT
  Sex: Male

DRUGS (11)
  1. ENFUVIRTIDE [Suspect]
     Route: 065
     Dates: start: 20060808, end: 20060830
  2. NORVIR [Concomitant]
     Dates: start: 20060808, end: 20060830
  3. NORVIR [Concomitant]
     Dates: start: 20070410, end: 20070521
  4. NORVIR [Concomitant]
     Dates: start: 20070521, end: 20080601
  5. PREZISTA [Concomitant]
     Dates: start: 20060808, end: 20060830
  6. PREZISTA [Concomitant]
     Dates: start: 20070410, end: 20080601
  7. TRUVADA [Concomitant]
     Dates: start: 20060808, end: 20060830
  8. EPIVIR [Concomitant]
     Dates: start: 20070410, end: 20080601
  9. BACTRIM DS [Concomitant]
     Dates: start: 20060511, end: 20080626
  10. ZITHROMAX [Concomitant]
     Dates: start: 20070101, end: 20071115
  11. ZITHROMAX [Concomitant]
     Dates: start: 20070101, end: 20070101

REACTIONS (2)
  - ANAEMIA [None]
  - RENAL FAILURE CHRONIC [None]
